FAERS Safety Report 19745093 (Version 1)
Quarter: 2021Q3

REPORT INFORMATION
  Report Type: Spontaneous
  Country: US (occurrence: US)
  Receive Date: 20210824
  Receipt Date: 20210824
  Transmission Date: 20211014
  Serious: Yes (Other)
  Sender: FDA-Public Use
  Company Number: None

PATIENT
  Age: 17 Year
  Sex: Male
  Weight: 81 kg

DRUGS (2)
  1. DAPSONE. [Concomitant]
     Active Substance: DAPSONE
  2. ABSORICA [Suspect]
     Active Substance: ISOTRETINOIN
     Indication: ACNE
     Route: 048
     Dates: start: 20210706, end: 20210726

REACTIONS (2)
  - Libido decreased [None]
  - Ageusia [None]

NARRATIVE: CASE EVENT DATE: 20210726
